FAERS Safety Report 8780542 (Version 3)
Quarter: 2012Q4

REPORT INFORMATION
  Report Type: 
  Country: US (occurrence: US)
  Receive Date: 20120913
  Receipt Date: 20121018
  Transmission Date: 20130627
  Serious: Yes (Death)
  Sender: FDA-Public Use
  Company Number: US-BRISTOL-MYERS SQUIBB COMPANY-16936593

PATIENT
  Age: 74 Year
  Sex: Female

DRUGS (2)
  1. TOBRAMYCIN SULFATE [Suspect]
  2. OXYGEN [Concomitant]

REACTIONS (1)
  - Pneumonia [Fatal]
